FAERS Safety Report 5261822-0 (Version None)
Quarter: 2007Q1

REPORT INFORMATION
  Report Type: 
  Country: None (occurrence: None)
  Receive Date: 20070310
  Receipt Date: 20070228
  Transmission Date: 20070707
  Serious: Yes (Hospitalization)
  Sender: FDA-Public Use
  Company Number: 2006UW07039

PATIENT
  Age: 28 Year
  Sex: Male
  Weight: 159.1 kg

DRUGS (6)
  1. SEROQUEL [Suspect]
     Indication: PSYCHOTIC DISORDER
     Dosage: 100-200 MG PO
     Dates: start: 19980201, end: 20040701
  2. RISPERDAL [Suspect]
     Dates: start: 19970501, end: 19980101
  3. ABILIFY [Concomitant]
  4. GEODON [Concomitant]
  5. HALDOL [Concomitant]
     Dates: start: 20031101
  6. LAMICTAL [Concomitant]
     Dates: start: 20031101, end: 20040201

REACTIONS (6)
  - ANAEMIA [None]
  - DIABETES MELLITUS [None]
  - RENAL FAILURE [None]
  - TESTIS CANCER [None]
  - WEIGHT INCREASED [None]
  - WHITE BLOOD CELL COUNT DECREASED [None]
